FAERS Safety Report 6017099-1 (Version None)
Quarter: 2008Q4

REPORT INFORMATION
  Report Type: 
  Country: None (occurrence: None)
  Receive Date: 20081223
  Receipt Date: 20081212
  Transmission Date: 20090506
  Serious: No
  Sender: FDA-Public Use
  Company Number: US-JNJFOC-20081203029

PATIENT
  Sex: Male
  Weight: 145.15 kg

DRUGS (7)
  1. FENTANYL TRANSDERMAL SYSTEM [Suspect]
     Indication: BACK PAIN
     Route: 062
  2. FENTANYL TRANSDERMAL SYSTEM [Suspect]
     Indication: NECK PAIN
     Route: 062
  3. ACIPHEX [Concomitant]
     Indication: GASTRIC DISORDER
     Route: 048
  4. ZOLOFT [Concomitant]
     Indication: NEURALGIA
     Dosage: 100 MG DAILY  AND 150 MG DAILY
     Route: 048
  5. KLONOPIN [Concomitant]
     Indication: MUSCLE RELAXANT THERAPY
     Route: 048
  6. CRANBERRY PILLS [Concomitant]
     Indication: BLOOD CREATININE INCREASED
     Route: 048
  7. AVALIDE [Concomitant]
     Indication: BLOOD PRESSURE
     Route: 048

REACTIONS (11)
  - APPLICATION SITE IRRITATION [None]
  - DYSPEPSIA [None]
  - FEELING ABNORMAL [None]
  - FLUSHING [None]
  - HOT FLUSH [None]
  - INAPPROPRIATE SCHEDULE OF DRUG ADMINISTRATION [None]
  - INCORRECT DRUG ADMINISTRATION DURATION [None]
  - SELF-MEDICATION [None]
  - SOMNOLENCE [None]
  - WITHDRAWAL SYNDROME [None]
  - WRONG TECHNIQUE IN DRUG USAGE PROCESS [None]
